FAERS Safety Report 10058196 (Version 2)
Quarter: 2016Q4

REPORT INFORMATION
  Report Type: Spontaneous
  Country: US (occurrence: US)
  Receive Date: 20140404
  Receipt Date: 20161109
  Transmission Date: 20170206
  Serious: No
  Sender: FDA-Public Use
  Company Number: US-PFIZER INC-2014094658

PATIENT
  Age: 63 Year
  Sex: Female

DRUGS (5)
  1. ROBAXIN [Suspect]
     Active Substance: METHOCARBAMOL
     Dosage: UNK
  2. REMERON [Suspect]
     Active Substance: MIRTAZAPINE
     Dosage: UNK
  3. NEURONTIN [Suspect]
     Active Substance: GABAPENTIN
     Dosage: UNK
  4. DOXYCYCLINE MONOHYDRATE [Suspect]
     Active Substance: DOXYCYCLINE
     Dosage: UNK
  5. BIAXIN [Suspect]
     Active Substance: CLARITHROMYCIN
     Dosage: UNK

REACTIONS (1)
  - Drug hypersensitivity [Unknown]
